FAERS Safety Report 25575834 (Version 1)
Quarter: 2025Q3

REPORT INFORMATION
  Report Type: Report from Study
  Country: AE (occurrence: AE)
  Receive Date: 20250718
  Receipt Date: 20250718
  Transmission Date: 20251020
  Serious: Yes (Hospitalization)
  Sender: JOHNSON AND JOHNSON
  Company Number: AE-JNJFOC-20250719065

PATIENT
  Age: 27 Year
  Sex: Female

DRUGS (1)
  1. SPRAVATO [Suspect]
     Active Substance: ESKETAMINE
     Indication: Major depression
     Route: 045
     Dates: start: 202504

REACTIONS (3)
  - Illness [Unknown]
  - Asthenia [Unknown]
  - Decreased activity [Unknown]

NARRATIVE: CASE EVENT DATE: 20250701
